FAERS Safety Report 18430959 (Version 1)
Quarter: 2020Q4

REPORT INFORMATION
  Report Type: Spontaneous
  Country: US (occurrence: US)
  Receive Date: 20201027
  Receipt Date: 20201027
  Transmission Date: 20210114
  Serious: Yes (Hospitalization, Other)
  Sender: FDA-Public Use
  Company Number: US-TORRENT-00010507

PATIENT
  Age: 77 Year
  Sex: Male

DRUGS (1)
  1. TADALAFIL. [Suspect]
     Active Substance: TADALAFIL
     Indication: URINARY RETENTION
     Dosage: DAILY

REACTIONS (2)
  - Cerebral haemorrhage [Unknown]
  - Intraventricular haemorrhage [Unknown]
